FAERS Safety Report 8374941-7 (Version None)
Quarter: 2012Q2

REPORT INFORMATION
  Report Type: 
  Country: None (occurrence: None)
  Receive Date: 20120521
  Receipt Date: 20120509
  Transmission Date: 20120825
  Serious: Yes (Other)
  Sender: FDA-Public Use
  Company Number: US-ROCHE-1046765

PATIENT
  Sex: Female
  Weight: 97.61 kg

DRUGS (3)
  1. PEGASYS [Suspect]
     Indication: HEPATITIS C
     Dates: start: 20110917
  2. RIBAVIRIN [Concomitant]
     Route: 048
     Dates: start: 20110829, end: 20120223
  3. PEGINTERFERON ALFA-2B [Suspect]
     Indication: HEPATITIS C
     Dates: start: 20110829, end: 20120213

REACTIONS (5)
  - INFLUENZA LIKE ILLNESS [None]
  - NAUSEA [None]
  - ANGER [None]
  - VOMITING [None]
  - FATIGUE [None]
